FAERS Safety Report 9645974 (Version 4)
Quarter: 2014Q1

REPORT INFORMATION
  Report Type: Report from Study
  Country: DE (occurrence: DE)
  Receive Date: 20131025
  Receipt Date: 20140228
  Transmission Date: 20141002
  Serious: Yes (Hospitalization)
  Sender: FDA-Public Use
  Company Number: DE-BRISTOL-MYERS SQUIBB COMPANY-19591924

PATIENT
  Age: 61 Year
  Sex: Female

DRUGS (6)
  1. ABATACEPT [Suspect]
     Dates: start: 20130215, end: 20130606
  2. METHOTREXATE [Suspect]
     Dosage: 7.5MG/WEEK
     Dates: start: 2003, end: 201306
  3. PREDNISOLONE [Concomitant]
  4. FOSAMAX [Concomitant]
  5. TARGIN [Concomitant]
  6. LYRICA [Concomitant]

REACTIONS (7)
  - Clostridium colitis [Recovered/Resolved]
  - Gastroenteritis norovirus [Recovered/Resolved]
  - Cholecystitis [Recovered/Resolved]
  - Abdominal adhesions [Recovered/Resolved]
  - Candida sepsis [Recovered/Resolved]
  - Ileus [Recovered/Resolved]
  - Urinary tract infection [Unknown]
